FAERS Safety Report 6855117-9 (Version None)
Quarter: 2010Q3

REPORT INFORMATION
  Report Type: 
  Country: None (occurrence: None)
  Receive Date: 20100717
  Receipt Date: 20081125
  Transmission Date: 20110219
  Serious: Yes (Other)
  Sender: FDA-Public Use
  Company Number: US-PFIZER INC-2007108860

PATIENT
  Age: 66 Year
  Sex: Male
  Weight: 83.9 kg

DRUGS (3)
  1. CHANTIX [Suspect]
     Indication: SMOKING CESSATION THERAPY
     Dosage: 1 MG, 2X/DAY
     Route: 048
     Dates: start: 20070501, end: 20070618
  2. ZOCOR [Concomitant]
     Dosage: 20 MG, 1X/DAY
  3. LISINOPRIL [Concomitant]
     Dosage: 30 MG, 1X/DAY

REACTIONS (3)
  - ARTHRALGIA [None]
  - BACK PAIN [None]
  - MYALGIA [None]
